FAERS Safety Report 19887835 (Version 1)
Quarter: 2021Q3

REPORT INFORMATION
  Report Type: Spontaneous
  Country: US (occurrence: US)
  Receive Date: 20210928
  Receipt Date: 20210928
  Transmission Date: 20211014
  Serious: Yes (Death)
  Sender: FDA-Public Use
  Company Number: US-ORPHANEU-2019004848

PATIENT

DRUGS (2)
  1. CARBAGLU [Suspect]
     Active Substance: CARGLUMIC ACID
     Dosage: 400 MILLIGRAM, BID
     Dates: start: 20190314
  2. CARBAGLU [Suspect]
     Active Substance: CARGLUMIC ACID
     Indication: HYPERGLYCINAEMIA
     Dosage: 2500 MG, BID

REACTIONS (7)
  - Nausea [Unknown]
  - Nasopharyngitis [Unknown]
  - Off label use [Recovered/Resolved]
  - COVID-19 [Fatal]
  - Headache [Unknown]
  - Ammonia increased [Unknown]
  - Dizziness [Unknown]

NARRATIVE: CASE EVENT DATE: 2019
